FAERS Safety Report 9982061 (Version 2)
Quarter: 2014Q1

REPORT INFORMATION
  Report Type: Report from Study
  Country: US (occurrence: US)
  Receive Date: 20140307
  Receipt Date: 20140307
  Transmission Date: 20141002
  Serious: No
  Sender: FDA-Public Use
  Company Number: US-ABBVIE-13P-163-1168120-00

PATIENT
  Age: 52 Year
  Sex: Female

DRUGS (11)
  1. HUMIRA [Suspect]
     Indication: PSORIATIC ARTHROPATHY
     Dosage: INITIAL DOSE
     Dates: start: 20131105
  2. FLUOROMETHOLONE [Concomitant]
     Indication: PSORIATIC ARTHROPATHY
  3. FLUOROMETHOLONE [Concomitant]
     Indication: INFLAMMATION
  4. FLUOROMETHOLONE [Concomitant]
     Indication: GLAUCOMA
  5. PROZAC [Concomitant]
     Indication: BIPOLAR I DISORDER
  6. LISINOPRIL [Concomitant]
     Indication: HYPERTENSION
  7. PREDNISONE [Concomitant]
     Indication: PSORIATIC ARTHROPATHY
  8. PREDNISONE [Concomitant]
     Dosage: HALF A PILL
  9. LORTAB [Concomitant]
     Indication: PAIN
     Dosage: 10/500MG
  10. TRAMADOL [Concomitant]
     Indication: PAIN
  11. UNKNOWN MEDICATION [Concomitant]
     Indication: GLAUCOMA

REACTIONS (10)
  - Asthenia [Not Recovered/Not Resolved]
  - Dyspnoea [Not Recovered/Not Resolved]
  - Contusion [Unknown]
  - Nausea [Not Recovered/Not Resolved]
  - Vomiting [Not Recovered/Not Resolved]
  - Asthenia [Recovered/Resolved]
  - Laziness [Recovered/Resolved]
  - Fatigue [Recovered/Resolved]
  - Psoriatic arthropathy [Unknown]
  - Headache [Recovered/Resolved]
